FAERS Safety Report 9982150 (Version 2)
Quarter: 2014Q1

REPORT INFORMATION
  Report Type: Report from Study
  Country: US (occurrence: US)
  Receive Date: 20140307
  Receipt Date: 20140307
  Transmission Date: 20141002
  Serious: No
  Sender: FDA-Public Use
  Company Number: US-ABBVIE-13P-163-1167500-00

PATIENT
  Age: 61 Year
  Sex: Female

DRUGS (9)
  1. HUMIRA [Suspect]
     Indication: CROHN^S DISEASE
     Dates: start: 20130911
  2. PENTASA [Concomitant]
     Indication: CROHN^S DISEASE
  3. FLAGYL [Concomitant]
     Indication: FISTULA
  4. PREDNISONE [Concomitant]
     Indication: CROHN^S DISEASE
  5. NEXIUM [Concomitant]
     Indication: GASTROOESOPHAGEAL REFLUX DISEASE
  6. CALCIUM [Concomitant]
     Indication: OSTEOPOROSIS
     Dosage: 500+
  7. VITAMIN D [Concomitant]
     Indication: OSTEOPOROSIS
  8. RECLAST [Concomitant]
     Indication: OSTEOPOROSIS
     Dosage: LAST DOSE ON 02-JUL-2013
  9. VAGIFEM [Concomitant]
     Indication: VAGINAL DISORDER
     Route: 067

REACTIONS (1)
  - Injection site pain [Not Recovered/Not Resolved]
